FAERS Safety Report 14016026 (Version 7)
Quarter: 2018Q2

REPORT INFORMATION
  Report Type: Spontaneous
  Country: AT (occurrence: AT)
  Receive Date: 20170927
  Receipt Date: 20180419
  Transmission Date: 20180711
  Serious: Yes (Hospitalization, Disabling, Other)
  Sender: FDA-Public Use
  Company Number: AT-PFIZER INC-2017412620

PATIENT
  Age: 92 Year
  Sex: Male
  Weight: 68 kg

DRUGS (22)
  1. FOLIC ACID B-6 + B-12 [Concomitant]
     Dosage: 1 DF, UNK (1-0-0)
  2. KREON 10 000 [Concomitant]
     Dosage: AS NEEDED
  3. CRATAEGUTT [Concomitant]
     Dosage: 20 ML, UNK (OFTEN)
  4. ZOLDEM [Concomitant]
     Active Substance: ZOLPIDEM TARTRATE
     Dosage: 5 MG, AS NEEDED
  5. SALAZOPYRIN [Suspect]
     Active Substance: SULFASALAZINE
     Dosage: 500 MG, DAILY (1-0-0)
     Dates: start: 2013, end: 20170605
  6. VENOSTASIN [Concomitant]
     Dosage: UNK
  7. NEBIVOLOL. [Concomitant]
     Active Substance: NEBIVOLOL
     Dosage: UNK
     Dates: end: 2015
  8. HARZOL [Concomitant]
     Dosage: 1 DF, 2X/DAY (1-0-1)
  9. AMARYL COMBI [Concomitant]
     Dosage: 0.5 MG, (1-0-0) AS NEEDED
  10. ISOKET RETARD [Concomitant]
     Dosage: 10 MG, AS NEEDED
  11. MAGNOSOLV [Concomitant]
     Dosage: 1 DF, AS NEEDED
  12. DEFLAMAT [Concomitant]
     Active Substance: DICLOFENAC SODIUM
     Dosage: 50 MG, AS NEEDED
  13. DEXAGENTA-POS [Concomitant]
     Dosage: UNK
  14. ANDROFIN [Concomitant]
     Dosage: 5 DF, 1X/DAY (1-0-0)
  15. ISOKET [Concomitant]
     Active Substance: ISOSORBIDE DINITRATE
     Dosage: 40 MG, 1X/DAY (0-0-1)
  16. SALAZOPYRIN [Suspect]
     Active Substance: SULFASALAZINE
     Indication: COLITIS
     Dosage: 500 MG, AS NEEDED
     Dates: start: 20080818, end: 2012
  17. DAFLON [Concomitant]
     Dosage: 500 MG, 1X/DAY (1-0-0)
  18. METOHEXAL [Concomitant]
     Active Substance: METOPROLOL SUCCINATE
     Dosage: 47 MG, 1X/DAY (0-1-0)
     Dates: start: 2015
  19. COLOFAC [Concomitant]
     Active Substance: MEBEVERINE HYDROCHLORIDE
     Dosage: 1 DF, (1-0-0) AS NEEDED
  20. AMLODIPIN [Concomitant]
     Active Substance: AMLODIPINE BESYLATE
     Dosage: UNK
  21. ANTIBIOPHILUS [Concomitant]
     Dosage: UNK, AS NEEDED
  22. AMARYL [Concomitant]
     Active Substance: GLIMEPIRIDE
     Dosage: 0.5 MG, 1X/DAY (1-0-0)

REACTIONS (32)
  - Swelling [Recovered/Resolved]
  - Rash macular [Recovered/Resolved]
  - Dyschezia [Recovered/Resolved]
  - Swelling [Recovered/Resolved]
  - Dermatitis exfoliative [Recovered/Resolved]
  - Rash [Recovered/Resolved]
  - Pruritus [Recovered/Resolved]
  - Micturition urgency [Recovered/Resolved]
  - Dry mouth [Recovered/Resolved]
  - Emotional disorder [Recovered/Resolved]
  - Peripheral swelling [Recovered/Resolved]
  - Cataract [Recovered/Resolved]
  - Peripheral swelling [Recovered/Resolved]
  - Chills [Recovered/Resolved]
  - Wound haematoma [Recovered/Resolved]
  - Syncope [Recovered/Resolved]
  - Arthralgia [Recovered/Resolved]
  - Mobility decreased [Recovered/Resolved]
  - Proteinuria [Recovered/Resolved]
  - Liver disorder [Recovered/Resolved]
  - Orthostatic intolerance [Recovered/Resolved]
  - Bowen^s disease [Recovered/Resolved]
  - Skin haemorrhage [Recovered/Resolved]
  - Paraesthesia [Recovered/Resolved]
  - Pain in extremity [Recovered/Resolved]
  - Vein disorder [Recovered/Resolved]
  - Feeling abnormal [Recovered/Resolved]
  - Hyperkeratosis [Recovered/Resolved]
  - Muscle spasms [Recovered/Resolved]
  - Hypertension [Recovered/Resolved]
  - Nausea [Recovered/Resolved]
  - Malaise [Recovered/Resolved]

NARRATIVE: CASE EVENT DATE: 2017
